FAERS Safety Report 4320744-X (Version None)
Quarter: 2004Q1

REPORT INFORMATION
  Report Type: 
  Country: None (occurrence: None)
  Receive Date: 20040315
  Receipt Date: 20031204
  Transmission Date: 20041129
  Serious: No
  Sender: FDA-Public Use
  Company Number: 2003182991US

PATIENT
  Sex: Female
  Weight: 66.2 kg

DRUGS (10)
  1. BEXTRA [Suspect]
     Indication: LOCALISED OSTEOARTHRITIS
     Dosage: 10 MG, QD, ORAL
     Route: 048
  2. MODURETIC 5-50 [Suspect]
  3. ARIMIDEX [Suspect]
  4. LIPITOR [Suspect]
  5. ATENUATE [Suspect]
  6. ACTOS [Concomitant]
  7. GLUCOVANCE [Concomitant]
  8. DIETHYLPROPION HYDROCHLORIDE (AMFEPRAMONE HYDROCHLORIDE) [Concomitant]
  9. SINGULAIR [Concomitant]
  10. AMBIEN [Concomitant]

REACTIONS (2)
  - ALOPECIA [None]
  - DRUG INTERACTION [None]
